FAERS Safety Report 6626537-2 (Version None)
Quarter: 2010Q1

REPORT INFORMATION
  Report Type: 
  Country: None (occurrence: None)
  Receive Date: 20100309
  Receipt Date: 20100309
  Transmission Date: 20100710
  Serious: No
  Sender: FDA-Public Use
  Company Number: None

PATIENT
  Age: 51 Year
  Sex: Male
  Weight: 99.3377 kg

DRUGS (1)
  1. CARDIZEM [Suspect]
     Indication: TACHYCARDIA
     Dosage: 120MG BID P.O. (ORAL)
     Route: 048
     Dates: start: 20090908, end: 20090913

REACTIONS (4)
  - CHEST DISCOMFORT [None]
  - DYSPNOEA [None]
  - HYPERHIDROSIS [None]
  - PALPITATIONS [None]
